FAERS Safety Report 6184051-5 (Version None)
Quarter: 2009Q2

REPORT INFORMATION
  Report Type: 
  Country: None (occurrence: None)
  Receive Date: 20090508
  Receipt Date: 20090429
  Transmission Date: 20091009
  Serious: Yes (Hospitalization)
  Sender: FDA-Public Use
  Company Number: DE-JNJFOC-20090302374

PATIENT
  Age: 54 Year
  Sex: Male
  Weight: 109 kg

DRUGS (7)
  1. REMICADE [Suspect]
     Dosage: RECEIVED TOTAL OF 8 INFUSIONS (5 ON UNSPECIFIED DATES)
     Route: 042
  2. REMICADE [Suspect]
     Route: 042
  3. REMICADE [Suspect]
     Indication: PSORIATIC ARTHROPATHY
     Route: 042
  4. METHOTREXATE [Concomitant]
     Indication: PSORIASIS
     Route: 048
  5. PREDNISOLONE [Concomitant]
     Indication: PSORIASIS
     Route: 048
  6. INDOMETHACIN [Concomitant]
     Indication: PSORIASIS
  7. AMLODIPINE [Concomitant]
     Route: 048

REACTIONS (8)
  - BRADYCARDIA [None]
  - CHEST PAIN [None]
  - CONFUSIONAL STATE [None]
  - CONVULSION [None]
  - HEADACHE [None]
  - HYPOTENSION [None]
  - INFUSION RELATED REACTION [None]
  - SHOCK [None]
